FAERS Safety Report 12142445 (Version 1)
Quarter: 2016Q1

REPORT INFORMATION
  Report Type: Spontaneous
  Country: AT (occurrence: AT)
  Receive Date: 20160303
  Receipt Date: 20160303
  Transmission Date: 20160526
  Serious: Yes (Other)
  Sender: FDA-Public Use
  Company Number: PHHY2016AT027012

PATIENT
  Age: 5 Year
  Sex: Male

DRUGS (2)
  1. OTANOL//CIPROFLOXACIN HYDROCHLORIDE [Concomitant]
     Indication: OTITIS MEDIA
     Route: 065
     Dates: start: 20160209, end: 20160221
  2. AZITHROMYCIN SANDOZ [Suspect]
     Active Substance: AZITHROMYCIN ANHYDROUS
     Indication: OTITIS MEDIA
     Dosage: 200 MG/5 ML
     Route: 048
     Dates: start: 20160208, end: 20160210

REACTIONS (3)
  - Gait disturbance [Recovering/Resolving]
  - Blood creatine phosphokinase increased [Recovering/Resolving]
  - Arthralgia [Recovering/Resolving]
